FAERS Safety Report 4986505-3 (Version None)
Quarter: 2006Q2

REPORT INFORMATION
  Report Type: 
  Country: None (occurrence: None)
  Receive Date: 20060428
  Receipt Date: 20060113
  Transmission Date: 20061013
  Serious: Yes (Other)
  Sender: FDA-Public Use
  Company Number: US-ROCHE-432376

PATIENT
  Age: 16 Year
  Sex: Male
  Weight: 95.7 kg

DRUGS (1)
  1. ACCUTANE [Suspect]
     Indication: DRUG USE FOR UNKNOWN INDICATION
     Route: 048
     Dates: start: 19920615, end: 19930615

REACTIONS (30)
  - ARTHRALGIA [None]
  - ASTHENIA [None]
  - BACK PAIN [None]
  - COLD SWEAT [None]
  - COLITIS [None]
  - CONSTIPATION [None]
  - CROHN'S DISEASE [None]
  - DECREASED APPETITE [None]
  - DEPRESSION [None]
  - DIZZINESS [None]
  - EATING DISORDER [None]
  - EMOTIONAL DISTRESS [None]
  - FATIGUE [None]
  - GASTROINTESTINAL DISORDER [None]
  - ILEITIS [None]
  - INFLAMMATORY BOWEL DISEASE [None]
  - IRRITABILITY [None]
  - IRRITABLE BOWEL SYNDROME [None]
  - LIP DRY [None]
  - MYALGIA [None]
  - NEPHROLITHIASIS [None]
  - RASH [None]
  - RENAL DISORDER [None]
  - SELF ESTEEM DECREASED [None]
  - SINUSITIS [None]
  - SLEEP DISORDER [None]
  - SUICIDAL IDEATION [None]
  - SUNBURN [None]
  - UPPER RESPIRATORY TRACT INFECTION [None]
  - WEIGHT DECREASED [None]
